FAERS Safety Report 7745250-1 (Version None)
Quarter: 2011Q3

REPORT INFORMATION
  Report Type: 
  Country: None (occurrence: None)
  Receive Date: 20110819
  Receipt Date: 20110713
  Transmission Date: 20111222
  Serious: No
  Sender: FDA-Public Use
  Company Number: 037078

PATIENT
  Sex: Female
  Weight: 65.3 kg

DRUGS (3)
  1. LACOSAMIDE [Suspect]
     Indication: PARTIAL SEIZURES
     Dosage: (50 MG BID ORAL)
     Route: 048
     Dates: start: 20110101, end: 20110715
  2. LAMICTAL [Concomitant]
  3. M.V.I. [Concomitant]

REACTIONS (2)
  - PRURITUS [None]
  - RASH [None]
